FAERS Safety Report 4565370-2 (Version None)
Quarter: 2005Q1

REPORT INFORMATION
  Report Type: 
  Country: None (occurrence: None)
  Receive Date: 20050126
  Receipt Date: 20050111
  Transmission Date: 20050727
  Serious: Yes (Hospitalization, Other)
  Sender: FDA-Public Use
  Company Number: USA040773000

PATIENT
  Sex: Female

DRUGS (1)
  1. EVISTA [Suspect]

REACTIONS (7)
  - LUNG NEOPLASM [None]
  - NEOPLASM RECURRENCE [None]
  - POSTMENOPAUSAL HAEMORRHAGE [None]
  - SARCOMA UTERUS [None]
  - UTERINE ENLARGEMENT [None]
  - UTERINE LEIOMYOMA [None]
  - VAGINAL NEOPLASM [None]
